FAERS Safety Report 18691290 (Version 1)
Quarter: 2021Q1

REPORT INFORMATION
  Report Type: Spontaneous
  Country: US (occurrence: US)
  Receive Date: 20210101
  Receipt Date: 20210101
  Transmission Date: 20210419
  Serious: No
  Sender: FDA-Public Use
  Company Number: US-ASTRAZENECA-2020SF63919

PATIENT
  Age: 772 Month
  Sex: Female
  Weight: 101.2 kg

DRUGS (4)
  1. LYNPARZA [Suspect]
     Active Substance: OLAPARIB
     Indication: BLOOD CREATININE INCREASED
     Route: 048
     Dates: start: 20201104
  2. MAGENSIUM [Concomitant]
     Indication: BLOOD MAGNESIUM DECREASED
     Route: 048
     Dates: start: 20201104
  3. LYNPARZA [Suspect]
     Active Substance: OLAPARIB
     Indication: BLOOD CREATININE INCREASED
     Route: 048
     Dates: start: 202006, end: 20201103
  4. ALEVE [Concomitant]
     Active Substance: NAPROXEN SODIUM
     Indication: PAIN IN EXTREMITY
     Route: 048

REACTIONS (5)
  - Blood magnesium decreased [Recovering/Resolving]
  - Insomnia [Unknown]
  - Limb discomfort [Not Recovered/Not Resolved]
  - Pain in extremity [Not Recovered/Not Resolved]
  - Gait inability [Recovered/Resolved]

NARRATIVE: CASE EVENT DATE: 202006
